FAERS Safety Report 22053558 (Version 1)
Quarter: 2023Q1

REPORT INFORMATION
  Report Type: Spontaneous
  Country: US (occurrence: None)
  Receive Date: 20230301
  Receipt Date: 20230301
  Transmission Date: 20230417
  Serious: Yes (Hospitalization, Disabling)
  Sender: FDA-Public Use
  Company Number: None

PATIENT
  Age: 43 Year
  Sex: Female
  Weight: 45 kg

DRUGS (2)
  1. CIPROFLOXACIN [Suspect]
     Active Substance: CIPROFLOXACIN
     Indication: Urinary tract infection
     Dosage: 20 CAPSULES TWICE A DAY ORAL
     Route: 048
  2. Lyricia [Concomitant]

REACTIONS (6)
  - Pain [None]
  - Bedridden [None]
  - Nerve injury [None]
  - Weight decreased [None]
  - Alopecia [None]
  - Adverse drug reaction [None]

NARRATIVE: CASE EVENT DATE: 20210917
